FAERS Safety Report 4894011-X (Version None)
Quarter: 2006Q1

REPORT INFORMATION
  Report Type: 
  Country: None (occurrence: None)
  Receive Date: 20060127
  Receipt Date: 20050426
  Transmission Date: 20060701
  Serious: No
  Sender: FDA-Public Use
  Company Number: US-GLAXOSMITHKLINE-A0555817A

PATIENT
  Age: 47 Year
  Sex: Female

DRUGS (4)
  1. WELLBUTRIN [Suspect]
     Dosage: 300MG PER DAY
     Route: 048
     Dates: start: 20040101, end: 20050301
  2. BUPROPION HYDROCHLORIDE [Suspect]
     Indication: BIPOLAR DISORDER
     Dosage: 300MG PER DAY
     Route: 048
     Dates: start: 20050401, end: 20050421
  3. PAXIL CR [Suspect]
     Indication: ANXIETY
     Dosage: 25MG TWICE PER DAY
     Route: 048
     Dates: start: 19990401, end: 20050425
  4. SEROQUEL [Suspect]
     Indication: DRUG USE FOR UNKNOWN INDICATION
     Dosage: 25MG VARIABLE DOSE
     Route: 048
     Dates: start: 20040830

REACTIONS (5)
  - DYSKINESIA [None]
  - HANGOVER [None]
  - MUSCLE TWITCHING [None]
  - RESTLESS LEGS SYNDROME [None]
  - TIC [None]
